FAERS Safety Report 9621306 (Version 1)
Quarter: 2013Q4

REPORT INFORMATION
  Report Type: Spontaneous
  Country: US (occurrence: None)
  Receive Date: 20131011
  Receipt Date: 20131011
  Transmission Date: 20140711
  Serious: Yes (Hospitalization)
  Sender: FDA-Public Use
  Company Number: None

PATIENT
  Age: 73 Year
  Sex: Female
  Weight: 110 kg

DRUGS (16)
  1. PRADAXA [Suspect]
     Indication: ATRIAL FIBRILLATION
     Route: 048
  2. BUMEX [Concomitant]
  3. CIPRO [Concomitant]
  4. PRADAXA [Concomitant]
  5. DILTIAZEM [Concomitant]
  6. DOXAZOSIN [Concomitant]
  7. FERROIUS FUMARARE [Concomitant]
  8. LORTAB [Concomitant]
  9. INSULIN [Concomitant]
  10. SYNTHROID [Concomitant]
  11. METOLAZONE [Concomitant]
  12. METOPROLOL [Concomitant]
  13. PRILOSEC [Concomitant]
  14. KLOR-CON [Concomitant]
  15. PRAVACHOL [Concomitant]
  16. SPIRIVA [Concomitant]

REACTIONS (4)
  - Asthenia [None]
  - Dizziness [None]
  - Gastrointestinal haemorrhage [None]
  - Haemorrhagic anaemia [None]
